FAERS Safety Report 10159879 (Version 1)
Quarter: 2014Q2

REPORT INFORMATION
  Report Type: Spontaneous
  Country: GB (occurrence: GB)
  Receive Date: 20140508
  Receipt Date: 20140508
  Transmission Date: 20141212
  Serious: Yes (Other)
  Sender: FDA-Public Use
  Company Number: PHFR2014GB003275

PATIENT
  Age: 30 Year
  Sex: Male

DRUGS (2)
  1. CLOZAPINE [Suspect]
     Dosage: 375 MG DAILY, 100MG/5ML SOLUTION, 125MG IN THE MORNING AND 250MG AT NIGHT
     Route: 048
  2. ARIPIPRAZOLE [Concomitant]
     Dosage: 15 MG, DAILY IN THE MORNING
     Route: 048

REACTIONS (1)
  - Ejaculation failure [Not Recovered/Not Resolved]
